FAERS Safety Report 13340976 (Version 1)
Quarter: 2017Q1

REPORT INFORMATION
  Report Type: Spontaneous
  Country: JP (occurrence: JP)
  Receive Date: 20170316
  Receipt Date: 20170316
  Transmission Date: 20170428
  Serious: Yes (Other)
  Sender: FDA-Public Use
  Company Number: JP-BRISTOL-MYERS SQUIBB COMPANY-16898124

PATIENT

DRUGS (1)
  1. KENACORT [Suspect]
     Active Substance: TRIAMCINOLONE
     Indication: PRODUCT USED FOR UNKNOWN INDICATION
     Dosage: NO OF INF:8
     Route: 014

REACTIONS (4)
  - Paralysis [Unknown]
  - Speech disorder [Unknown]
  - Blindness unilateral [Unknown]
  - Blood pressure increased [Unknown]
